FAERS Safety Report 17124388 (Version 6)
Quarter: 2021Q3

REPORT INFORMATION
  Report Type: Spontaneous
  Country: GB (occurrence: GB)
  Receive Date: 20191206
  Receipt Date: 20210818
  Transmission Date: 20211014
  Serious: Yes (Other)
  Sender: FDA-Public Use
  Company Number: GB-GLAXOSMITHKLINE-GB2019221357

PATIENT
  Age: 23 Year
  Sex: Male

DRUGS (7)
  1. DICLOFENAC SODIUM. [Suspect]
     Active Substance: DICLOFENAC SODIUM
     Dosage: 0.1 %, QID
     Route: 061
  2. CHLORAMPHENICOL [Suspect]
     Active Substance: CHLORAMPHENICOL
     Indication: PRODUCT USED FOR UNKNOWN INDICATION
     Dosage: UNK, QID (FOUR TIMES PER DAY)
     Route: 061
  3. CYCLOPENTOLATE HYDROCHLORIDE. [Suspect]
     Active Substance: CYCLOPENTOLATE HYDROCHLORIDE
     Dosage: 1 %, TID
     Route: 061
  4. CYCLOPENTOLATE HYDROCHLORIDE. [Suspect]
     Active Substance: CYCLOPENTOLATE HYDROCHLORIDE
     Indication: PRODUCT USED FOR UNKNOWN INDICATION
     Dosage: UNK, TID  (THREE TIMES PER DAY)
     Route: 065
  5. HYALURONATE SODIUM [Suspect]
     Active Substance: HYALURONATE SODIUM
     Indication: PRODUCT USED FOR UNKNOWN INDICATION
     Dosage: 0.2 %, Q2H
     Route: 061
  6. DICLOFENAC SODIUM. [Suspect]
     Active Substance: DICLOFENAC SODIUM
     Indication: PRODUCT USED FOR UNKNOWN INDICATION
     Dosage: UNK, QID (FOUR TIMES PER DAY)
     Route: 061
  7. DICLOFENAC SODIUM. [Suspect]
     Active Substance: DICLOFENAC SODIUM
     Dosage: 0.4 %, QID
     Route: 061

REACTIONS (2)
  - Keratopathy [Recovered/Resolved with Sequelae]
  - Visual impairment [Recovering/Resolving]
